FAERS Safety Report 18648393 (Version 1)
Quarter: 2020Q4

REPORT INFORMATION
  Report Type: Spontaneous
  Country: US (occurrence: US)
  Receive Date: 20201221
  Receipt Date: 20201221
  Transmission Date: 20210114
  Serious: Yes (Hospitalization)
  Sender: FDA-Public Use
  Company Number: None

PATIENT
  Age: 51 Year
  Sex: Male

DRUGS (1)
  1. LISINOPRIL (LISINOPRIL 10MG TAB) [Suspect]
     Active Substance: LISINOPRIL
     Dosage: ?          OTHER DOSE:1 TAB;?
     Route: 048
     Dates: start: 20190507, end: 20200803

REACTIONS (2)
  - Erythema [None]
  - Angioedema [None]

NARRATIVE: CASE EVENT DATE: 20200802
